FAERS Safety Report 11725142 (Version 1)
Quarter: 2015Q4

REPORT INFORMATION
  Report Type: Spontaneous
  Country: US (occurrence: US)
  Receive Date: 20151111
  Receipt Date: 20151111
  Transmission Date: 20160304
  Serious: Yes (Hospitalization, Other)
  Sender: FDA-Public Use
  Company Number: US-UCBSA-2015003697

PATIENT
  Age: 64 Year
  Sex: Male
  Weight: 104 kg

DRUGS (3)
  1. VIMPAT [Suspect]
     Active Substance: LACOSAMIDE
     Indication: PARTIAL SEIZURES
     Dosage: 400 MG, ONCE DAILY (QD)
     Route: 048
     Dates: start: 201208
  2. VIMPAT [Suspect]
     Active Substance: LACOSAMIDE
     Dosage: DOSAGE CUT IN HALF TO 200MG
     Dates: start: 201412
  3. VIMPAT [Suspect]
     Active Substance: LACOSAMIDE
     Dosage: UNK, DOSE INCRESED
     Dates: start: 20150301

REACTIONS (3)
  - Cognitive disorder [Not Recovered/Not Resolved]
  - Incorrect dose administered [Unknown]
  - Seizure [Recovered/Resolved]

NARRATIVE: CASE EVENT DATE: 201412
